FAERS Safety Report 19104590 (Version 2)
Quarter: 2021Q2

REPORT INFORMATION
  Report Type: Spontaneous
  Country: US (occurrence: US)
  Receive Date: 20210407
  Receipt Date: 20210409
  Transmission Date: 20210717
  Serious: Yes (Life-Threatening, Other)
  Sender: FDA-Public Use
  Company Number: US-PFIZER INC-2021368878

PATIENT

DRUGS (4)
  1. OXYGEN. [Concomitant]
     Active Substance: OXYGEN
     Indication: GENERAL ANAESTHESIA
     Dosage: UNK (3:3)
     Route: 064
  2. SUCCINYLCHOLINE CHLORIDE. [Suspect]
     Active Substance: SUCCINYLCHOLINE CHLORIDE
     Indication: GENERAL ANAESTHESIA
     Dosage: 100 MG
     Route: 064
  3. THIAMYLAL [Concomitant]
     Active Substance: THIAMYLAL
     Indication: GENERAL ANAESTHESIA
     Dosage: 200 MG
     Route: 064
  4. HALOTHANE. [Concomitant]
     Active Substance: HALOTHANE
     Indication: GENERAL ANAESTHESIA
     Dosage: UNK (0.5%)
     Route: 064

REACTIONS (2)
  - Neonatal respiratory depression [Unknown]
  - Maternal exposure during pregnancy [Unknown]
